FAERS Safety Report 13787093 (Version 1)
Quarter: 2017Q3

REPORT INFORMATION
  Report Type: Spontaneous
  Country: US (occurrence: US)
  Receive Date: 20170725
  Receipt Date: 20170725
  Transmission Date: 20171127
  Serious: No
  Sender: FDA-Public Use
  Company Number: US-UNITED THERAPEUTICS-UNT-2016-018920

PATIENT
  Age: 59 Year
  Sex: Female
  Weight: 81.63 kg

DRUGS (3)
  1. LETAIRIS [Suspect]
     Active Substance: AMBRISENTAN
     Indication: PRODUCT USED FOR UNKNOWN INDICATION
     Dosage: 10 MG, QD
     Route: 065
  2. REMODULIN [Suspect]
     Active Substance: TREPROSTINIL
     Indication: PULMONARY ARTERIAL HYPERTENSION
     Dosage: 0.089 ?G/KG, CONTINUING
     Route: 058
     Dates: start: 20141112
  3. ADCIRCA [Concomitant]
     Active Substance: TADALAFIL
     Indication: PRODUCT USED FOR UNKNOWN INDICATION

REACTIONS (8)
  - Headache [Unknown]
  - Device issue [Unknown]
  - Nausea [Unknown]
  - Fatigue [Unknown]
  - Chills [Unknown]
  - Diarrhoea [Unknown]
  - Vomiting [Unknown]
  - Flushing [Unknown]

NARRATIVE: CASE EVENT DATE: 20161208
